FAERS Safety Report 6681883-1 (Version None)
Quarter: 2010Q2

REPORT INFORMATION
  Report Type: 
  Country: None (occurrence: None)
  Receive Date: 20100412
  Receipt Date: 20100111
  Transmission Date: 20101027
  Serious: Yes (Hospitalization)
  Sender: FDA-Public Use
  Company Number: 220006N09FRA

PATIENT
  Age: 4 Year
  Sex: Female
  Weight: 10.9 kg

DRUGS (1)
  1. SAIZEN [Suspect]
     Indication: SMALL FOR DATES BABY
     Dosage: 0.9 MG, 1 IN 1 D
     Dates: start: 20091210

REACTIONS (2)
  - EAR INFECTION [None]
  - TONSILLAR DISORDER [None]
